FAERS Safety Report 5429355-6 (Version None)
Quarter: 2007Q3

REPORT INFORMATION
  Report Type: 
  Country: None (occurrence: None)
  Receive Date: 20070827
  Receipt Date: 20070816
  Transmission Date: 20080115
  Serious: Yes (Hospitalization)
  Sender: FDA-Public Use
  Company Number: 100#01#2007-03122

PATIENT
  Age: 76 Year
  Sex: Female

DRUGS (4)
  1. TRAMADOL (TRAMADOL) (CAPSULES) (TRAMADOL) [Suspect]
     Indication: BACK DISORDER
     Dosage: ORAL
     Route: 048
  2. DIURETICS (DIURETICS) [Concomitant]
  3. STATINS (STATINS) [Concomitant]
  4. THYROXINE (LEVOTHYROXINE SODIUM) (THYROXINE) [Concomitant]

REACTIONS (2)
  - BILE DUCT STENOSIS [None]
  - CHOLANGITIS [None]
